FAERS Safety Report 4935545-9 (Version None)
Quarter: 2006Q1

REPORT INFORMATION
  Report Type: 
  Country: None (occurrence: None)
  Receive Date: 20060307
  Receipt Date: 20050830
  Transmission Date: 20060701
  Serious: No
  Sender: FDA-Public Use
  Company Number: US-GLAXOSMITHKLINE-A0572396A

PATIENT
  Age: 56 Year
  Sex: Male

DRUGS (7)
  1. REQUIP [Suspect]
     Indication: RESTLESS LEGS SYNDROME
     Dosage: .25MG THREE TIMES PER DAY
     Route: 048
  2. ZOLOFT [Concomitant]
  3. INSULIN [Concomitant]
  4. LISINOPRIL [Concomitant]
  5. SYNTHROID [Concomitant]
  6. TRICOR [Concomitant]
  7. WELLBUTRIN SR [Concomitant]
     Route: 048

REACTIONS (3)
  - ASTHENIA [None]
  - DYSPNOEA [None]
  - SENSATION OF HEAVINESS [None]
